FAERS Safety Report 10012104 (Version 1)
Quarter: 2014Q1

REPORT INFORMATION
  Report Type: Spontaneous
  Country: US (occurrence: None)
  Receive Date: 20140313
  Receipt Date: 20140313
  Transmission Date: 20141002
  Serious: Yes (Other)
  Sender: FDA-Public Use
  Company Number: None

PATIENT
  Age: 18 Year
  Sex: Female
  Weight: 36.9 kg

DRUGS (3)
  1. CYCLOPHOSPHAMIDE [Suspect]
  2. DAUNORUBICIN [Suspect]
  3. DOXORUBICIN HYDROCHLORIDE [Suspect]

REACTIONS (1)
  - Myelodysplastic syndrome [None]
